FAERS Safety Report 21622572 (Version 1)
Quarter: 2022Q4

REPORT INFORMATION
  Report Type: Report from Study
  Country: CA (occurrence: CA)
  Receive Date: 20221121
  Receipt Date: 20221121
  Transmission Date: 20230113
  Serious: Yes (Other)
  Sender: FDA-Public Use
  Company Number: CA-TAKEDA-2022TUS086363

PATIENT
  Age: 77 Year
  Sex: Male

DRUGS (3)
  1. VEDOLIZUMAB [Suspect]
     Active Substance: VEDOLIZUMAB
     Indication: Colitis ulcerative
     Dosage: 300 MILLIGRAM
     Route: 042
     Dates: start: 20221101
  2. AVSOLA [Concomitant]
     Active Substance: INFLIXIMAB-AXXQ
     Dosage: UNK
     Dates: start: 20220501
  3. PREDNISONE [Concomitant]
     Active Substance: PREDNISONE
     Dosage: UNK
     Dates: start: 20221020

REACTIONS (4)
  - Chest pain [Unknown]
  - Insomnia [Unknown]
  - Salivary hypersecretion [Unknown]
  - Hot flush [Unknown]
